FAERS Safety Report 8818732 (Version 2)
Quarter: 2012Q4

REPORT INFORMATION
  Report Type: 
  Country: US (occurrence: US)
  Receive Date: 20121001
  Receipt Date: 20121212
  Transmission Date: 20130627
  Serious: Yes (Death)
  Sender: FDA-Public Use
  Company Number: US-ROCHE-1133443

PATIENT
  Sex: Male

DRUGS (1)
  1. XELODA [Suspect]
     Indication: NEUROENDOCRINE CARCINOMA
     Route: 065

REACTIONS (1)
  - Death [Fatal]
